FAERS Safety Report 7392326-7 (Version None)
Quarter: 2011Q2

REPORT INFORMATION
  Report Type: 
  Country: None (occurrence: None)
  Receive Date: 20110404
  Receipt Date: 20110331
  Transmission Date: 20111010
  Serious: Yes (Death)
  Sender: FDA-Public Use
  Company Number: US-B.I. PHARMACEUTICALS,INC./RIDGEFIELD-2011-BP-09745BP

PATIENT
  Sex: Male

DRUGS (3)
  1. ASPIRIN [Suspect]
     Indication: ANTICOAGULANT THERAPY
     Route: 048
  2. PRADAXA [Suspect]
  3. PLAVIX [Suspect]
     Indication: ANTICOAGULANT THERAPY

REACTIONS (2)
  - STENT EMBOLISATION [None]
  - MYOCARDIAL INFARCTION [None]
